FAERS Safety Report 13401175 (Version 1)
Quarter: 2017Q2

REPORT INFORMATION
  Report Type: Spontaneous
  Country: US (occurrence: US)
  Receive Date: 20170404
  Receipt Date: 20170404
  Transmission Date: 20170830
  Serious: Yes (Other)
  Sender: FDA-Public Use
  Company Number: US-ELI_LILLY_AND_COMPANY-US201703012659

PATIENT
  Age: 57 Year
  Sex: Male
  Weight: 54 kg

DRUGS (5)
  1. EFFIENT [Suspect]
     Active Substance: PRASUGREL HYDROCHLORIDE
     Indication: STENT PLACEMENT
     Dosage: 10 MG, QD
     Route: 065
     Dates: start: 20170117, end: 20170122
  2. REPATHA [Suspect]
     Active Substance: EVOLOCUMAB
     Dosage: 140 MG, UNKNOWN
     Route: 058
     Dates: start: 20170220
  3. REPATHA [Suspect]
     Active Substance: EVOLOCUMAB
     Indication: PRODUCT USED FOR UNKNOWN INDICATION
     Dosage: 420 MG, MONTHLY (1/M)
     Route: 058
     Dates: start: 20170119
  4. BRILINTA [Concomitant]
     Active Substance: TICAGRELOR
     Dosage: UNK, UNKNOWN
     Route: 065
  5. REPATHA [Suspect]
     Active Substance: EVOLOCUMAB
     Dosage: UNK UNK, UNKNOWN
     Route: 058

REACTIONS (2)
  - Injection site rash [Recovered/Resolved]
  - Injection site pruritus [Recovered/Resolved]

NARRATIVE: CASE EVENT DATE: 20170120
